FAERS Safety Report 21944833 (Version 1)
Quarter: 2023Q1

REPORT INFORMATION
  Report Type: Spontaneous
  Country: FR (occurrence: FR)
  Receive Date: 20230202
  Receipt Date: 20230202
  Transmission Date: 20230417
  Serious: Yes (Hospitalization)
  Sender: FDA-Public Use
  Company Number: None

PATIENT
  Age: 72 Year
  Sex: Male

DRUGS (1)
  1. CLOZAPINE [Suspect]
     Active Substance: CLOZAPINE
     Indication: Product administration error
     Route: 065
     Dates: start: 20220703, end: 20220703

REACTIONS (6)
  - Mydriasis [Recovered/Resolved]
  - Product administration error [Recovered/Resolved]
  - Coma [Recovered/Resolved]
  - Wrong patient received product [Recovered/Resolved]
  - Dysarthria [Recovered/Resolved]
  - Pneumonia aspiration [Recovered/Resolved]

NARRATIVE: CASE EVENT DATE: 20220703
